FAERS Safety Report 26100152 (Version 2)
Quarter: 2025Q4

REPORT INFORMATION
  Report Type: Spontaneous
  Country: JP (occurrence: JP)
  Receive Date: 20251128
  Receipt Date: 20251217
  Transmission Date: 20260117
  Serious: Yes (Other)
  Sender: CSL BEHRING
  Company Number: JP-BEH-2025226879

PATIENT
  Age: 80 Year
  Sex: Male

DRUGS (1)
  1. HUMAN IMMUNOGLOBULIN G [Suspect]
     Active Substance: HUMAN IMMUNOGLOBULIN G
     Indication: Toxic epidermal necrolysis
     Route: 042

REACTIONS (4)
  - Rhesus antibodies positive [Unknown]
  - Haemoglobin decreased [Unknown]
  - Coombs direct test positive [Unknown]
  - Off label use [Unknown]
